FAERS Safety Report 10572444 (Version 1)
Quarter: 2014Q4

REPORT INFORMATION
  Report Type: Spontaneous
  Country: US (occurrence: US)
  Receive Date: 20141110
  Receipt Date: 20141110
  Transmission Date: 20150529
  Serious: Yes (Hospitalization, Other)
  Sender: FDA-Public Use
  Company Number: US-AMGEN-USASP2014085977

PATIENT
  Age: 39 Year
  Sex: Female

DRUGS (1)
  1. ENBREL [Suspect]
     Active Substance: ETANERCEPT
     Indication: RHEUMATOID ARTHRITIS
     Dosage: 50 MG, QWK
     Route: 065
     Dates: start: 20081210

REACTIONS (7)
  - Thoracotomy [Recovered/Resolved]
  - Beta haemolytic streptococcal infection [Recovered/Resolved]
  - Wound [Recovered/Resolved]
  - Rheumatoid arthritis [Recovered/Resolved]
  - Necrotising fasciitis [Recovered/Resolved]
  - Aspiration pleural cavity [Recovered/Resolved]
  - Neuralgia [Recovered/Resolved]

NARRATIVE: CASE EVENT DATE: 20140430
